FAERS Safety Report 12009154 (Version 1)
Quarter: 2016Q1

REPORT INFORMATION
  Report Type: Spontaneous
  Country: US (occurrence: None)
  Receive Date: 20160204
  Receipt Date: 20160204
  Transmission Date: 20160526
  Serious: Yes (Death, Other)
  Sender: FDA-Public Use
  Company Number: None

PATIENT
  Age: 33 Year
  Sex: Male
  Weight: 97.52 kg

DRUGS (1)
  1. AMBIEN CR [Suspect]
     Active Substance: ZOLPIDEM TARTRATE
     Indication: SLEEP DISORDER
     Dosage: 12.5MG 1 PILL 1 AT BEDTIME BY MOUTH
     Route: 048
     Dates: start: 20060510, end: 20060517

REACTIONS (8)
  - Psychotic disorder [None]
  - Anger [None]
  - Physical assault [None]
  - Suicide attempt [None]
  - Imprisonment [None]
  - Drug interaction [None]
  - Somnambulism [None]
  - Serotonin syndrome [None]

NARRATIVE: CASE EVENT DATE: 20060516
